FAERS Safety Report 7564529-X (Version None)
Quarter: 2011Q2

REPORT INFORMATION
  Report Type: 
  Country: None (occurrence: None)
  Receive Date: 20110622
  Receipt Date: 20100511
  Transmission Date: 20111010
  Serious: Yes (Death)
  Sender: FDA-Public Use
  Company Number: US-MYLANLABS-2010S1008245

PATIENT
  Age: 65 Year
  Sex: Male

DRUGS (7)
  1. CLOZAPINE [Suspect]
     Route: 048
  2. SPIRIVA [Concomitant]
  3. RISPERDAL [Concomitant]
  4. MORPHINE [Concomitant]
  5. INSULIN [Concomitant]
  6. SIMVASTATIN [Concomitant]
  7. ADVAIR DISKUS 100/50 [Concomitant]

REACTIONS (1)
  - DEATH [None]
